FAERS Safety Report 25367123 (Version 1)
Quarter: 2025Q2

REPORT INFORMATION
  Report Type: Spontaneous
  Country: DE (occurrence: DE)
  Receive Date: 20250528
  Receipt Date: 20250528
  Transmission Date: 20250717
  Serious: Yes (Hospitalization, Other)
  Sender: Unknown Manufacturer
  Company Number: None

PATIENT
  Age: 35 Year
  Sex: Female
  Weight: 68 kg

DRUGS (1)
  1. DICLOFENAC [Suspect]
     Active Substance: DICLOFENAC
     Indication: Nerve compression
     Dosage: 1-0-1
     Route: 048
     Dates: start: 20250118, end: 20250120

REACTIONS (4)
  - Muscle spasms [Recovered/Resolved with Sequelae]
  - Pain in extremity [Unknown]
  - Muscle spasms [Unknown]
  - Dystonia [Unknown]

NARRATIVE: CASE EVENT DATE: 20240119
